FAERS Safety Report 9558449 (Version 2)
Quarter: 2014Q3

REPORT INFORMATION
  Report Type: Spontaneous
  Country: US (occurrence: US)
  Receive Date: 20130926
  Receipt Date: 20140919
  Transmission Date: 20150326
  Serious: No
  Sender: FDA-Public Use
  Company Number: US-BIOGENIDEC-2013BI043422

PATIENT
  Age: 53 Year
  Sex: Female

DRUGS (6)
  1. PRAMIPEXOLE [Concomitant]
     Active Substance: PRAMIPEXOLE
  2. FOLIC ACID. [Concomitant]
     Active Substance: FOLIC ACID
  3. TECFIDERA [Suspect]
     Active Substance: DIMETHYL FUMARATE
     Indication: MULTIPLE SCLEROSIS
     Route: 048
     Dates: start: 20130503, end: 20140815
  4. ENOXAPARIN [Concomitant]
     Active Substance: ENOXAPARIN
  5. GABAPENTIN. [Concomitant]
     Active Substance: GABAPENTIN
  6. TECFIDERA [Suspect]
     Active Substance: DIMETHYL FUMARATE
     Indication: MULTIPLE SCLEROSIS
     Route: 048
     Dates: start: 20130426, end: 20130502

REACTIONS (3)
  - Flushing [Recovered/Resolved]
  - Urticaria [Not Recovered/Not Resolved]
  - Rash papular [Not Recovered/Not Resolved]

NARRATIVE: CASE EVENT DATE: 20130427
